FAERS Safety Report 5023315-5 (Version None)
Quarter: 2006Q2

REPORT INFORMATION
  Report Type: 
  Country: None (occurrence: None)
  Receive Date: 20060501
  Receipt Date: 20060217
  Transmission Date: 20061013
  Serious: Yes (Other)
  Sender: FDA-Public Use
  Company Number: US_0410106501

PATIENT
  Age: 44 Year
  Sex: Female
  Weight: 110.9 kg

DRUGS (32)
  1. ZYPREXA [Suspect]
     Dosage: 20 MG, 2/D; 20 MG, DAILY (1/D)
     Dates: start: 20040301, end: 20040901
  2. ZYPREXA [Suspect]
     Dosage: 20 MG, 2/D; 20 MG, DAILY (1/D)
     Dates: start: 20040201
  3. SYMBYAK (OLANZAPINE AND FLUOXETINE  HYDROCHLORIDE) [Suspect]
  4. METFORMIN [Concomitant]
  5. GLIPIZIDE/METFORMIN (GLIPIZIDE /METFORMIN) [Concomitant]
  6. LEXAPRO [Concomitant]
  7. RISPERDAL [Concomitant]
  8. MIRTAZAPINE [Concomitant]
  9. LISINOPRIL [Concomitant]
  10. LESCOL [Concomitant]
  11. FLONASE [Concomitant]
  12. AMOXICILLIN [Concomitant]
  13. SEROQUEL [Concomitant]
  14. LANTUS [Concomitant]
  15. LORAZEPAM [Concomitant]
  16. PHISOHEX [Concomitant]
  17. TRIAMCINOLONE [Concomitant]
  18. CYCLOBENZAPRINE HCL [Concomitant]
  19. FUROSEMIDE [Concomitant]
  20. RANITIDINE [Concomitant]
  21. IBUPROFEN [Concomitant]
  22. PREMARIN [Concomitant]
  23. QVAR 40 [Concomitant]
  24. ALBUTEROL [Concomitant]
  25. METOCLOPRAMID (METOCLOPRAMIDE HYDROCHLORIDE) [Concomitant]
  26. CIMETIDNE (CIMETIDINE) [Concomitant]
  27. GLUCOTROL [Concomitant]
  28. PANTOPRAZOLE SODIUM [Concomitant]
  29. PROMETHAZINE [Concomitant]
  30. CLARITHROMYCIN [Concomitant]
  31. MIDAZOLAM HYDROCHLORIDE [Concomitant]
  32. DURAGESIN (FENTANYL) [Concomitant]

REACTIONS (15)
  - ANXIETY [None]
  - BLOOD GLUCOSE INCREASED [None]
  - BRONCHITIS [None]
  - BRONCHOSPASM [None]
  - DIABETES MELLITUS [None]
  - DIZZINESS [None]
  - DYSPEPSIA [None]
  - DYSPHAGIA [None]
  - GASTRITIS [None]
  - GASTROENTERITIS [None]
  - INSOMNIA [None]
  - PRESCRIBED OVERDOSE [None]
  - REFLUX OESOPHAGITIS [None]
  - VISION BLURRED [None]
  - WEIGHT INCREASED [None]
